FAERS Safety Report 6862594-6 (Version None)
Quarter: 2010Q3

REPORT INFORMATION
  Report Type: 
  Country: None (occurrence: None)
  Receive Date: 20100721
  Receipt Date: 20100607
  Transmission Date: 20110219
  Serious: Yes (Death, Hospitalization, Other)
  Sender: FDA-Public Use
  Company Number: US-BAXTER-2010BH005207

PATIENT
  Age: 71 Year
  Sex: Male

DRUGS (9)
  1. HEPARIN SODIUM [Suspect]
     Indication: MULTIPLE MYELOMA
     Route: 065
     Dates: start: 20071005, end: 20071005
  2. HEPARIN SODIUM [Suspect]
     Route: 065
     Dates: start: 20071006, end: 20071006
  3. HEPARIN SODIUM [Suspect]
     Route: 065
     Dates: start: 20071007, end: 20071007
  4. HEPARIN SODIUM [Suspect]
     Route: 065
     Dates: start: 20071107
  5. TOPROL-XL [Concomitant]
     Indication: PRODUCT USED FOR UNKNOWN INDICATION
     Route: 065
  6. ASPIRIN [Concomitant]
     Indication: PRODUCT USED FOR UNKNOWN INDICATION
     Route: 065
  7. VITAMIN D [Concomitant]
     Indication: PRODUCT USED FOR UNKNOWN INDICATION
     Route: 065
  8. HYDROCODONE [Concomitant]
     Indication: PRODUCT USED FOR UNKNOWN INDICATION
     Route: 065
  9. FENTANYL [Concomitant]
     Indication: PRODUCT USED FOR UNKNOWN INDICATION
     Route: 065

REACTIONS (2)
  - DEATH [None]
  - THROMBOCYTOPENIA [None]
